FAERS Safety Report 24449899 (Version 1)
Quarter: 2024Q4

REPORT INFORMATION
  Report Type: Spontaneous
  Country: IN (occurrence: IN)
  Receive Date: 20241017
  Receipt Date: 20241017
  Transmission Date: 20250114
  Serious: Yes (Other)
  Sender: BRISTOL-MYERS SQUIBB COMPANY
  Company Number: IN-BRISTOL-MYERS SQUIBB COMPANY-2024-148928

PATIENT
  Age: 7 Decade
  Sex: Male

DRUGS (7)
  1. THALIDOMIDE [Suspect]
     Active Substance: THALIDOMIDE
     Indication: Type 2 lepra reaction
     Dosage: OVER 4-5 DAYS
  2. THALIDOMIDE [Suspect]
     Active Substance: THALIDOMIDE
     Dosage: GRADUALLY REDUCED OVER 4-5 DAYS TO 100 MG/DAY
  3. THALIDOMIDE [Suspect]
     Active Substance: THALIDOMIDE
     Dosage: GRADUALLY REDUCED TO 100 MG/DAY, TAKEN AT?BEDTIME WITHIN 5-7 DAYS
  4. RIFAMPIN [Concomitant]
     Active Substance: RIFAMPIN
     Indication: Type 2 lepra reaction
  5. CLOFAZIMINE [Concomitant]
     Active Substance: CLOFAZIMINE
     Indication: Type 2 lepra reaction
  6. CLOFAZIMINE [Concomitant]
     Active Substance: CLOFAZIMINE
  7. DAPSONE [Concomitant]
     Active Substance: DAPSONE
     Indication: Type 2 lepra reaction

REACTIONS (3)
  - Orthostatic hypotension [Recovering/Resolving]
  - Bradycardia [Recovering/Resolving]
  - Off label use [Unknown]
